FAERS Safety Report 7511556-4 (Version None)
Quarter: 2011Q2

REPORT INFORMATION
  Report Type: 
  Country: None (occurrence: None)
  Receive Date: 20110531
  Receipt Date: 20110526
  Transmission Date: 20111010
  Serious: Yes (Hospitalization)
  Sender: FDA-Public Use
  Company Number: DE-BRISTOL-MYERS SQUIBB COMPANY-15783319

PATIENT
  Sex: Male

DRUGS (2)
  1. SEROQUEL [Concomitant]
  2. ABILIFY [Suspect]

REACTIONS (1)
  - OBSESSIVE-COMPULSIVE DISORDER [None]
